FAERS Safety Report 5911583-4 (Version None)
Quarter: 2008Q4

REPORT INFORMATION
  Report Type: 
  Country: None (occurrence: None)
  Receive Date: 20081003
  Receipt Date: 20080919
  Transmission Date: 20090506
  Serious: Yes (Hospitalization)
  Sender: FDA-Public Use
  Company Number: JPI-P-004877

PATIENT
  Age: 60 Year
  Sex: Male

DRUGS (7)
  1. LUVOX [Suspect]
     Indication: DEPRESSION
     Dosage: (50 MG, 1 D), ORAL
     Route: 048
  2. PYGEUM AFRICANUM (ALL OTHER THERAPEUTIC PRODUCTS) [Suspect]
     Indication: BENIGN PROSTATIC HYPERPLASIA
     Dosage: (100 MG, 1 D), ORAL
     Route: 048
  3. LORAZEPAM [Suspect]
     Indication: DRUG USE FOR UNKNOWN INDICATION
     Dosage: (2 MG, 1, D), ORAL
     Route: 048
     Dates: start: 20020101, end: 20080101
  4. LORAZEPAM [Suspect]
     Indication: DRUG USE FOR UNKNOWN INDICATION
     Dosage: (2 MG, 1, D), ORAL
     Route: 048
     Dates: start: 20080101
  5. ACENOCOUMAROL (ACENOCOUMAROL) [Suspect]
     Indication: DRUG USE FOR UNKNOWN INDICATION
     Dosage: (1 MG, 1, D), ORAL
     Route: 048
     Dates: start: 20080101, end: 20080101
  6. AMIODARONE HCL [Suspect]
     Indication: DRUG USE FOR UNKNOWN INDICATION
     Dosage: (200 MG, 1 D), ORAL
     Route: 048
  7. ACENOCOUMAROL (ACENOCOUMAROL) [Concomitant]

REACTIONS (14)
  - ABDOMINAL RIGIDITY [None]
  - AMAUROSIS [None]
  - DYSPNOEA [None]
  - FALL [None]
  - FLATULENCE [None]
  - GALLOP RHYTHM PRESENT [None]
  - HEART SOUNDS ABNORMAL [None]
  - LUNG INJURY [None]
  - PAIN [None]
  - PAINFUL RESPIRATION [None]
  - RESPIRATORY DISORDER [None]
  - RIB FRACTURE [None]
  - SOMNOLENCE [None]
  - WOUND [None]
